FAERS Safety Report 25946644 (Version 1)
Quarter: 2025Q4

REPORT INFORMATION
  Report Type: Spontaneous
  Country: EU (occurrence: EU)
  Receive Date: 20251022
  Receipt Date: 20251022
  Transmission Date: 20260118
  Serious: Yes (Other)
  Sender: JOHNSON AND JOHNSON
  Company Number: None

PATIENT
  Age: 26 Year
  Sex: Male

DRUGS (2)
  1. INFLIXIMAB [Suspect]
     Active Substance: INFLIXIMAB
     Indication: Colitis ulcerative
     Route: 042
     Dates: start: 20250717, end: 20250717
  2. URBASON 40 mg POLVO Y DISOLVENTE PARA SOLUCION INYECTABLE [Concomitant]
     Indication: Premedication
     Route: 042
     Dates: start: 20250717, end: 20250717

REACTIONS (4)
  - Infusion related reaction [Recovered/Resolved]
  - Palatal oedema [Recovered/Resolved]
  - Rash [Recovered/Resolved]
  - Anaphylactic reaction [Recovered/Resolved]

NARRATIVE: CASE EVENT DATE: 20250717
